FAERS Safety Report 4383155-7 (Version None)
Quarter: 2004Q2

REPORT INFORMATION
  Report Type: 
  Country: None (occurrence: None)
  Receive Date: 20040622
  Receipt Date: 20040622
  Transmission Date: 20050107
  Serious: Yes (Life-Threatening, Hospitalization, Disabling, Congenital Anomaly)
  Sender: FDA-Public Use
  Company Number: None

PATIENT
  Sex: Male
  Weight: 1.1431 kg

DRUGS (2)
  1. PHENYTOIN [Suspect]
     Indication: CONVULSION
  2. VALPROIC ACID [Suspect]
     Indication: CONVULSION

REACTIONS (5)
  - BLINDNESS CONGENITAL [None]
  - COMPLICATIONS OF MATERNAL EXPOSURE TO THERAPEUTIC DRUGS [None]
  - CONGENITAL HYDROCEPHALUS [None]
  - DRUG EXPOSURE DURING PREGNANCY [None]
  - SPINA BIFIDA OCCULTA [None]
